FAERS Safety Report 9058783 (Version 1)
Quarter: 2013Q1

REPORT INFORMATION
  Report Type: Spontaneous
  Country: FR (occurrence: FR)
  Receive Date: 20130204
  Receipt Date: 20130204
  Transmission Date: 20140127
  Serious: Yes (Hospitalization)
  Sender: FDA-Public Use
  Company Number: PHHY2013FR009942

PATIENT
  Age: 30 Year
  Sex: Male

DRUGS (12)
  1. CERTICAN [Suspect]
     Indication: RENAL TRANSPLANT
     Dosage: 1 DF, BID
     Route: 048
     Dates: start: 20121016, end: 20121219
  2. SOLUPRED [Concomitant]
     Dosage: 10 MG, QD
     Dates: start: 2001
  3. MOPRAL [Concomitant]
     Dosage: 1 DF, QD
     Dates: start: 2001
  4. SECTRAL [Concomitant]
     Dosage: 1 DF, BID
  5. ZELITREX [Concomitant]
     Dosage: 5 MG, UNK
     Dates: start: 201109, end: 201211
  6. BACTRIM FORTE [Concomitant]
     Dosage: 3 DF, WEEKLY
     Dates: start: 201109, end: 201208
  7. SPECIAFOLDINE [Concomitant]
     Dosage: UNK
     Dates: start: 201109
  8. KEPPRA [Concomitant]
     Dosage: 500 MG, BID
     Dates: start: 201109
  9. OFLOXACINE [Concomitant]
     Dosage: 200 MG, BID
  10. CLAFORAN [Concomitant]
  11. VANCOMYCIN [Concomitant]
  12. ROVALCYTE [Concomitant]

REACTIONS (1)
  - Agranulocytosis [Recovered/Resolved with Sequelae]
